FAERS Safety Report 6794681-5 (Version None)
Quarter: 2010Q2

REPORT INFORMATION
  Report Type: 
  Country: None (occurrence: None)
  Receive Date: 20100625
  Receipt Date: 20100617
  Transmission Date: 20101027
  Serious: Yes (Other)
  Sender: FDA-Public Use
  Company Number: ES-JNJFOC-20091003723

PATIENT
  Age: 44 Year
  Sex: Male

DRUGS (3)
  1. REMICADE [Suspect]
     Indication: ANKYLOSING SPONDYLITIS
     Route: 042
     Dates: start: 20040402
  2. GLUCOCORTICOIDS [Concomitant]
  3. SULPHASALAZINE [Concomitant]

REACTIONS (2)
  - PNEUMONIA [None]
  - TUBERCULOSIS [None]
